FAERS Safety Report 20742211 (Version 1)
Quarter: 2022Q2

REPORT INFORMATION
  Report Type: Spontaneous
  Country: GB (occurrence: GB)
  Receive Date: 20220423
  Receipt Date: 20220423
  Transmission Date: 20220721
  Serious: Yes (Other)
  Sender: FDA-Public Use
  Company Number: GB-MYLANLABS-2022M1025577

PATIENT
  Sex: Female

DRUGS (1)
  1. SENSIPAR [Suspect]
     Active Substance: CINACALCET HYDROCHLORIDE
     Indication: Blood calcium increased
     Dosage: 30 MILLIGRAM, QD, 1 DOSAGE FORM, ONCE (1 30MG TABLET TAKEN ONCE)
     Route: 065

REACTIONS (6)
  - Hallucination [Unknown]
  - Nervousness [Recovered/Resolved]
  - Tremor [Recovered/Resolved]
  - Aggression [Recovered/Resolved]
  - Insomnia [Unknown]
  - Decreased appetite [Unknown]
